FAERS Safety Report 5266869-6 (Version None)
Quarter: 2007Q1

REPORT INFORMATION
  Report Type: 
  Country: None (occurrence: None)
  Receive Date: 20070316
  Receipt Date: 20070306
  Transmission Date: 20070707
  Serious: Yes (Other)
  Sender: FDA-Public Use
  Company Number: PHBS2007CH03958

PATIENT
  Sex: Female

DRUGS (2)
  1. AREDIA [Suspect]
     Route: 042
     Dates: start: 20030101, end: 20050101
  2. ZOMETA [Suspect]
     Route: 042
     Dates: start: 20050101

REACTIONS (2)
  - DENTAL OPERATION [None]
  - OSTEONECROSIS [None]
